FAERS Safety Report 16327020 (Version 1)
Quarter: 2019Q2

REPORT INFORMATION
  Report Type: Spontaneous
  Country: GB (occurrence: GB)
  Receive Date: 20190517
  Receipt Date: 20190517
  Transmission Date: 20190711
  Serious: Yes (Hospitalization)
  Sender: FDA-Public Use
  Company Number: GB-MYLANLABS-2019M1046225

PATIENT
  Age: 86 Year
  Sex: Male

DRUGS (6)
  1. FLUOXETINE [Suspect]
     Active Substance: FLUOXETINE HYDROCHLORIDE
     Indication: DEPRESSED MOOD
     Dosage: 20 MILLIGRAM, QD
     Route: 048
     Dates: start: 20180901, end: 20180925
  2. ATENOLOL ACCORD [Concomitant]
     Active Substance: ATENOLOL
     Dosage: UNK
  3. FINASTERIDE. [Concomitant]
     Active Substance: FINASTERIDE
     Dosage: UNK
  4. LISINOPRIL DIHYDRATE [Concomitant]
     Active Substance: LISINOPRIL
     Dosage: UNK
  5. FUROSEMIDE. [Concomitant]
     Active Substance: FUROSEMIDE
     Dosage: UNK
  6. APIXABAN [Concomitant]
     Active Substance: APIXABAN
     Dosage: UNK

REACTIONS (2)
  - Confusional state [Recovering/Resolving]
  - Hyponatraemia [Not Recovered/Not Resolved]

NARRATIVE: CASE EVENT DATE: 20180911
